FAERS Safety Report 6242499-4 (Version None)
Quarter: 2009Q2

REPORT INFORMATION
  Report Type: 
  Country: None (occurrence: None)
  Receive Date: 20090622
  Receipt Date: 20090622
  Transmission Date: 20091009
  Serious: Yes (Death, Hospitalization)
  Sender: FDA-Public Use
  Company Number: None

PATIENT
  Age: 79 Year
  Sex: Female
  Weight: 59.4 kg

DRUGS (1)
  1. CETUXIMAB 2MG/ML [Suspect]
     Indication: NON-SMALL CELL LUNG CANCER
     Dosage: 250MG/M2 IV DRIP
     Route: 041
     Dates: start: 20090120, end: 20090521

REACTIONS (2)
  - LOBAR PNEUMONIA [None]
  - RESPIRATORY FAILURE [None]
